FAERS Safety Report 9295253 (Version 1)
Quarter: 2013Q2

REPORT INFORMATION
  Report Type: Spontaneous
  Country: JP (occurrence: JP)
  Receive Date: 20130517
  Receipt Date: 20130517
  Transmission Date: 20140414
  Serious: Yes (Other)
  Sender: FDA-Public Use
  Company Number: JP-EISAI INC-E3810-06444-SPO-JP

PATIENT
  Age: 31 Year
  Sex: Male

DRUGS (1)
  1. PARIET (RABEPRAZOLE) [Suspect]
     Indication: PRODUCT USED FOR UNKNOWN INDICATION
     Route: 048
     Dates: start: 201204, end: 201205

REACTIONS (1)
  - Drug-induced liver injury [Unknown]
